FAERS Safety Report 15422506 (Version 9)
Quarter: 2019Q1

REPORT INFORMATION
  Report Type: Spontaneous
  Country: CA (occurrence: CA)
  Receive Date: 20180925
  Receipt Date: 20190130
  Transmission Date: 20190417
  Serious: Yes (Hospitalization, Other)
  Sender: FDA-Public Use
  Company Number: CA-CELLTRION INC.-2018CA021409

PATIENT

DRUGS (14)
  1. INFLECTRA [Suspect]
     Active Substance: INFLIXIMAB-DYYB
     Dosage: 700 MG, 0, 2, 6 WEEKS AND THEN EVERY 8 WEEKS
     Route: 042
     Dates: start: 20180518
  2. INFLECTRA [Suspect]
     Active Substance: INFLIXIMAB-DYYB
     Dosage: 700 MG, 0, 2, 6 WEEKS AND THEN EVERY 8 WEEKS
     Route: 042
     Dates: start: 20180518, end: 2018
  3. INFLECTRA [Suspect]
     Active Substance: INFLIXIMAB-DYYB
     Dosage: 700 MG EVERY 0,2,6 WEEKS AND THEN EVERY 8 WEEKS
     Route: 042
     Dates: start: 20190119
  4. COVERSYL PLUS [Concomitant]
     Active Substance: INDAPAMIDE\PERINDOPRIL
     Indication: HYPERTENSION
     Dosage: UNK
  5. INFLECTRA [Suspect]
     Active Substance: INFLIXIMAB-DYYB
     Dosage: 700 MG EVERY 0,2,6 WEEKS AND THEN EVERY 8 WEEKS
     Route: 042
     Dates: start: 20181221
  6. INFLECTRA [Suspect]
     Active Substance: INFLIXIMAB-DYYB
     Dosage: 700 MG, 0, 2, 6 WEEKS AND THEN EVERY 8 WEEKS
     Route: 042
     Dates: start: 20180518
  7. INFLECTRA [Suspect]
     Active Substance: INFLIXIMAB-DYYB
     Dosage: 700 MG, 0, 2, 6 WEEKS AND THEN EVERY 8 WEEKS
     Route: 042
     Dates: start: 20180720, end: 2018
  8. INFLECTRA [Suspect]
     Active Substance: INFLIXIMAB-DYYB
     Dosage: 700 MG, 0, 2, 6 WEEKS AND THEN EVERY 8 WEEKS
     Route: 042
     Dates: start: 20181017
  9. INFLECTRA [Suspect]
     Active Substance: INFLIXIMAB-DYYB
     Indication: CROHN^S DISEASE
     Dosage: 700 MG, 0, 2, 6 WEEKS AND THEN EVERY 8 WEEKS
     Route: 042
     Dates: start: 20171122
  10. INFLECTRA [Suspect]
     Active Substance: INFLIXIMAB-DYYB
     Dosage: 700 MG, 0, 2, 6 WEEKS AND THEN EVERY 8 WEEKS
     Route: 042
     Dates: start: 20180518
  11. INFLECTRA [Suspect]
     Active Substance: INFLIXIMAB-DYYB
     Dosage: 700 MG, 0, 2, 6 WEEKS AND THEN EVERY 8 WEEKS
     Route: 042
     Dates: start: 20181017
  12. INFLECTRA [Suspect]
     Active Substance: INFLIXIMAB-DYYB
     Dosage: 700 MG EVERY 0,2,6 WEEKS AND THEN EVERY 8 WEEKS
     Route: 042
     Dates: start: 20181210
  13. ALDACTONE [Concomitant]
     Active Substance: SPIRONOLACTONE
     Indication: FLUID RETENTION
     Dosage: UNK
  14. OMEPRAZOLE. [Concomitant]
     Active Substance: OMEPRAZOLE
     Indication: GASTROOESOPHAGEAL REFLUX DISEASE
     Dosage: UNK

REACTIONS (12)
  - Therapeutic response shortened [Unknown]
  - Arthralgia [Unknown]
  - Pyoderma gangrenosum [Unknown]
  - Malaise [Not Recovered/Not Resolved]
  - Uveitis [Unknown]
  - Anal abscess [Recovered/Resolved]
  - Condition aggravated [Unknown]
  - Pyrexia [Unknown]
  - Product use issue [Unknown]
  - Subcutaneous abscess [Recovered/Resolved]
  - Aphthous ulcer [Unknown]
  - Erythema nodosum [Unknown]

NARRATIVE: CASE EVENT DATE: 20180914
